FAERS Safety Report 18051429 (Version 3)
Quarter: 2020Q3

REPORT INFORMATION
  Report Type: Report from Study
  Country: CA (occurrence: CA)
  Receive Date: 20200721
  Receipt Date: 20200915
  Transmission Date: 20201103
  Serious: Yes (Hospitalization, Other)
  Sender: FDA-Public Use
  Company Number: PHHY2017CA171639

PATIENT
  Age: 32 Year
  Sex: Male

DRUGS (6)
  1. CORTEF [Concomitant]
     Active Substance: HYDROCORTISONE
     Dosage: 10 MG, QD (AFTERNOONS)
     Route: 065
  2. SANDOSTATIN LAR DEPOT [Suspect]
     Active Substance: OCTREOTIDE ACETATE
  3. FLORINEF ACETATE [Concomitant]
     Active Substance: FLUDROCORTISONE ACETATE
     Indication: PRODUCT USED FOR UNKNOWN INDICATION
     Dosage: 01 MG, QD
     Route: 065
  4. SANDOSTATIN LAR DEPOT [Suspect]
     Active Substance: OCTREOTIDE ACETATE
     Indication: PANCREATIC NEUROENDOCRINE TUMOUR
     Dosage: 30 MG, QMO
     Route: 030
     Dates: start: 20140905
  5. SANDOSTATIN LAR DEPOT [Suspect]
     Active Substance: OCTREOTIDE ACETATE
  6. CORTEF [Concomitant]
     Active Substance: HYDROCORTISONE
     Indication: PRODUCT USED FOR UNKNOWN INDICATION
     Dosage: 15 MG, QD (MORNINGS)
     Route: 065

REACTIONS (11)
  - Chills [Recovering/Resolving]
  - Facial pain [Recovering/Resolving]
  - Malignant neoplasm progression [Unknown]
  - Sepsis [Recovering/Resolving]
  - Injury [Unknown]
  - Tooth abscess [Recovering/Resolving]
  - Road traffic accident [Recovering/Resolving]
  - Hypotension [Recovering/Resolving]
  - Lower limb fracture [Recovering/Resolving]
  - Vomiting [Recovering/Resolving]
  - Renal cyst [Unknown]

NARRATIVE: CASE EVENT DATE: 201711
